FAERS Safety Report 13103905 (Version 3)
Quarter: 2017Q1

REPORT INFORMATION
  Report Type: Spontaneous
  Country: IT (occurrence: IT)
  Receive Date: 20170111
  Receipt Date: 20170220
  Transmission Date: 20170428
  Serious: Yes (Death, Hospitalization, Other)
  Sender: FDA-Public Use
  Company Number: IT-BRISTOL-MYERS SQUIBB COMPANY-BMS-2016-112593

PATIENT
  Age: 74 Year
  Sex: Male

DRUGS (1)
  1. METFORMIN HYDROCHLORIDE. [Suspect]
     Active Substance: METFORMIN HYDROCHLORIDE
     Indication: DIABETES MELLITUS
     Route: 065

REACTIONS (8)
  - Vertigo [Fatal]
  - Vomiting [Fatal]
  - Abdominal pain [Unknown]
  - Haemodialysis [Unknown]
  - Renal failure [Fatal]
  - Lactic acidosis [Fatal]
  - Cardiac failure [Fatal]
  - Malaise [Fatal]
